FAERS Safety Report 16849439 (Version 1)
Quarter: 2019Q3

REPORT INFORMATION
  Report Type: Spontaneous
  Country: CA (occurrence: CA)
  Receive Date: 20190925
  Receipt Date: 20190925
  Transmission Date: 20191005
  Serious: Yes (Other)
  Sender: FDA-Public Use
  Company Number: PHHY2019CA220417

PATIENT
  Age: 6 Year
  Sex: Male

DRUGS (1)
  1. DABRAFENIB [Suspect]
     Active Substance: DABRAFENIB
     Indication: GANGLIOGLIOMA
     Dosage: 75 MG, BID (5 MG/KG/DAY)
     Route: 048

REACTIONS (7)
  - Panniculitis [Recovering/Resolving]
  - Erythema nodosum [Recovered/Resolved]
  - Product use in unapproved indication [Unknown]
  - Skin toxicity [Recovered/Resolved]
  - Skin hyperpigmentation [Recovered/Resolved]
  - Rash maculo-papular [Recovered/Resolved]
  - Paronychia [Recovered/Resolved]
